FAERS Safety Report 8505555-3 (Version None)
Quarter: 2012Q2

REPORT INFORMATION
  Report Type: 
  Country: None (occurrence: None)
  Receive Date: 20120405
  Receipt Date: 20091001
  Transmission Date: 20120825
  Serious: Yes (Other)
  Sender: FDA-Public Use
  Company Number: PHEH2009US11685

PATIENT
  Age: 50 Year
  Sex: Female
  Weight: 68 kg

DRUGS (8)
  1. CYMBALTA [Concomitant]
  2. LUNESTA [Concomitant]
  3. VITAMIN D [Concomitant]
  4. KLONOPIN [Concomitant]
  5. RECLAST [Suspect]
     Indication: OSTEOPOROSIS
     Dosage: 5MG,  INTRAVENOUS
     Route: 042
     Dates: start: 20090812, end: 20090812
  6. TOPAMAX [Concomitant]
  7. ACETAMINOPHEN [Concomitant]
  8. CALCIUM CARBONATE [Concomitant]

REACTIONS (8)
  - CRYING [None]
  - OEDEMA PERIPHERAL [None]
  - HEADACHE [None]
  - ACTIVITIES OF DAILY LIVING IMPAIRED [None]
  - PAIN [None]
  - INFLUENZA LIKE ILLNESS [None]
  - PAIN IN EXTREMITY [None]
  - BACK PAIN [None]
